FAERS Safety Report 17138422 (Version 3)
Quarter: 2021Q2

REPORT INFORMATION
  Report Type: Spontaneous
  Country: US (occurrence: US)
  Receive Date: 20191211
  Receipt Date: 20210625
  Transmission Date: 20210716
  Serious: Yes (Other)
  Sender: FDA-Public Use
  Company Number: US-GILEAD-2019-0441925

PATIENT
  Age: 49 Year
  Sex: Male
  Weight: 74.8 kg

DRUGS (27)
  1. STRIBILD [Suspect]
     Active Substance: COBICISTAT\ELVITEGRAVIR\EMTRICITABINE\TENOFOVIR DISOPROXIL FUMARATE
     Indication: HIV INFECTION
     Dosage: UNK
     Route: 048
     Dates: start: 2012, end: 2017
  2. LASIX [Concomitant]
     Active Substance: FUROSEMIDE
  3. XANAX [Concomitant]
     Active Substance: ALPRAZOLAM
  4. STRIBILD [Suspect]
     Active Substance: COBICISTAT\ELVITEGRAVIR\EMTRICITABINE\TENOFOVIR DISOPROXIL FUMARATE
     Dosage: UNK
     Route: 048
     Dates: start: 20140108, end: 20140917
  5. CEFTAZIDIME. [Concomitant]
     Active Substance: CEFTAZIDIME
  6. HEPARIN [Concomitant]
     Active Substance: HEPARIN SODIUM
  7. EPZICOM [Concomitant]
     Active Substance: ABACAVIR SULFATE\LAMIVUDINE
  8. ENOXAPARIN [ENOXAPARIN SODIUM] [Concomitant]
     Active Substance: ENOXAPARIN SODIUM
  9. ATRIPLA [Suspect]
     Active Substance: EFAVIRENZ\EMTRICITABINE\TENOFOVIR DISOPROXIL FUMARATE
     Indication: HIV INFECTION
     Dosage: UNK
     Route: 048
     Dates: start: 200211, end: 2012
  10. TYLENOL [Concomitant]
     Active Substance: ACETAMINOPHEN
  11. DEXAMETHASONE. [Concomitant]
     Active Substance: DEXAMETHASONE
  12. TIVICAY [Concomitant]
     Active Substance: DOLUTEGRAVIR SODIUM
  13. IBUPROFEN. [Concomitant]
     Active Substance: IBUPROFEN
  14. BACTRIM [Concomitant]
     Active Substance: SULFAMETHOXAZOLE\TRIMETHOPRIM
  15. LOVENOX [LEVOFLOXACIN] [Concomitant]
     Active Substance: LEVOFLOXACIN
  16. CYCLOPHOSPHAMIDE. [Concomitant]
     Active Substance: CYCLOPHOSPHAMIDE
  17. TRIUMEQ [Concomitant]
     Active Substance: ABACAVIR SULFATE\DOLUTEGRAVIR SODIUM\LAMIVUDINE
  18. VINCRISTINE [Concomitant]
     Active Substance: VINCRISTINE
  19. FLUCONAZOLE. [Concomitant]
     Active Substance: FLUCONAZOLE
  20. ATRIPLA [Suspect]
     Active Substance: EFAVIRENZ\EMTRICITABINE\TENOFOVIR DISOPROXIL FUMARATE
     Dosage: UNK
     Route: 048
     Dates: start: 20121006, end: 20130412
  21. ASPIRIN [ACETYLSALICYLIC ACID] [Concomitant]
     Active Substance: ASPIRIN
  22. PANTOPRAZOLE [Concomitant]
     Active Substance: PANTOPRAZOLE
  23. ACICLOVIR [Concomitant]
     Active Substance: ACYCLOVIR
  24. DOXORUBICIN [Concomitant]
     Active Substance: DOXORUBICIN
  25. ATRIPLA [Suspect]
     Active Substance: EFAVIRENZ\EMTRICITABINE\TENOFOVIR DISOPROXIL FUMARATE
     Dosage: UNK
     Route: 048
     Dates: start: 201401, end: 2017
  26. PREDNISONE. [Concomitant]
     Active Substance: PREDNISONE
  27. VANCOMYCIN [Concomitant]
     Active Substance: VANCOMYCIN

REACTIONS (10)
  - Nephropathy [Unknown]
  - Economic problem [Unknown]
  - Proteinuria [Unknown]
  - Pain [Unknown]
  - Hypertonic bladder [Unknown]
  - Pollakiuria [Unknown]
  - Emotional distress [Unknown]
  - Anhedonia [Unknown]
  - Chronic kidney disease [Not Recovered/Not Resolved]
  - Anxiety [Unknown]

NARRATIVE: CASE EVENT DATE: 201304
